FAERS Safety Report 6286612-1 (Version None)
Quarter: 2009Q3

REPORT INFORMATION
  Report Type: 
  Country: None (occurrence: None)
  Receive Date: 20090727
  Receipt Date: 20090727
  Transmission Date: 20100115
  Serious: Yes (Life-Threatening)
  Sender: FDA-Public Use
  Company Number: None

PATIENT
  Sex: Male
  Weight: 96.7976 kg

DRUGS (1)
  1. DIVALPROEX SODIUM [Suspect]
     Indication: CONVULSION
     Dosage: 500 MG ONE TAB TWICE DAILY
     Dates: start: 20090628, end: 20090630

REACTIONS (3)
  - ABNORMAL BEHAVIOUR [None]
  - BELLIGERENCE [None]
  - CONVULSION [None]
